FAERS Safety Report 21032673 (Version 1)
Quarter: 2022Q2

REPORT INFORMATION
  Report Type: Spontaneous
  Country: US (occurrence: None)
  Receive Date: 20220630
  Receipt Date: 20220630
  Transmission Date: 20220720
  Serious: No
  Sender: FDA-Public Use
  Company Number: None

PATIENT
  Sex: Female

DRUGS (1)
  1. OTEZLA [Suspect]
     Active Substance: APREMILAST
     Indication: Psoriasis
     Dosage: 30MG TWICE DAILY BY MOUTH?
     Route: 048
     Dates: start: 202103

REACTIONS (8)
  - Mood swings [None]
  - Rash [None]
  - Skin disorder [None]
  - Acne [None]
  - Drug ineffective [None]
  - Skin discolouration [None]
  - Scab [None]
  - Psoriasis [None]
